FAERS Safety Report 4453165-X (Version None)
Quarter: 2004Q3

REPORT INFORMATION
  Report Type: 
  Country: None (occurrence: None)
  Receive Date: 20040917
  Receipt Date: 20040915
  Transmission Date: 20050211
  Serious: Yes (Hospitalization, Other)
  Sender: FDA-Public Use
  Company Number: 04-09-1298

PATIENT
  Age: 74 Year
  Sex: Male

DRUGS (2)
  1. MIRTAZAPINE TABLETS [Suspect]
     Indication: MAJOR DEPRESSION
     Dosage: 30-45 MG QD ORAL
     Route: 048
  2. LISINOPRIL [Concomitant]

REACTIONS (12)
  - ABNORMAL BEHAVIOUR [None]
  - BACTERIA URINE [None]
  - BLOOD CREATINE PHOSPHOKINASE INCREASED [None]
  - BLOOD CREATININE INCREASED [None]
  - BLOOD UREA INCREASED [None]
  - MUSCLE RIGIDITY [None]
  - NEUTROPHIL COUNT INCREASED [None]
  - RED BLOOD CELLS URINE POSITIVE [None]
  - THINKING ABNORMAL [None]
  - URINARY TRACT INFECTION [None]
  - WHITE BLOOD CELL COUNT INCREASED [None]
  - WHITE BLOOD CELLS URINE POSITIVE [None]
